FAERS Safety Report 9999645 (Version 1)
Quarter: 2014Q1

REPORT INFORMATION
  Report Type: Spontaneous
  Country: US (occurrence: None)
  Receive Date: 20140310
  Receipt Date: 20140310
  Transmission Date: 20141002
  Serious: Yes (Hospitalization)
  Sender: FDA-Public Use
  Company Number: 2215714

PATIENT
  Sex: Female

DRUGS (1)
  1. PROPOFOL [Suspect]
     Indication: ANAESTHESIA PROCEDURE
     Dates: start: 20140218

REACTIONS (6)
  - Nausea [None]
  - Muscle spasms [None]
  - Abdominal pain [None]
  - Pyrexia [None]
  - Product contamination [None]
  - Toxic shock syndrome [None]
